FAERS Safety Report 13256239 (Version 1)
Quarter: 2017Q1

REPORT INFORMATION
  Report Type: Spontaneous
  Country: JP (occurrence: JP)
  Receive Date: 20170221
  Receipt Date: 20170221
  Transmission Date: 20170428
  Serious: Yes (Other)
  Sender: FDA-Public Use
  Company Number: JP-PFIZER INC-2016565887

PATIENT
  Age: 82 Year
  Sex: Female

DRUGS (8)
  1. HYALEIN [Concomitant]
     Active Substance: HYALURONATE SODIUM
     Indication: DRY EYE
     Dosage: UNK, 4X/DAY
     Route: 047
     Dates: start: 20160210
  2. MOHRUS L [Concomitant]
     Active Substance: KETOPROFEN
     Indication: ARTHRALGIA
     Dosage: UNK, 1X/DAY
     Route: 062
     Dates: start: 20100121
  3. AMLODIN [Concomitant]
     Active Substance: AMLODIPINE BESYLATE
     Indication: HYPERTENSION
     Dosage: 5 MG, 1X/DAY
     Route: 048
     Dates: start: 20100909
  4. CRAVIT [Concomitant]
     Active Substance: LEVOFLOXACIN
     Dosage: UNK, 4X/DAY
     Route: 047
     Dates: start: 20160422
  5. BETANIS [Concomitant]
     Active Substance: MIRABEGRON
     Indication: HYPERTONIC BLADDER
     Dosage: 25 MG, 1X/DAY
     Route: 048
     Dates: start: 20160602
  6. CELECOX [Concomitant]
     Active Substance: CELECOXIB
     Indication: CATARACT OPERATION
     Dosage: 100 MG, AS NEEDED
     Route: 048
     Dates: start: 20150902
  7. LYRICA [Suspect]
     Active Substance: PREGABALIN
     Dosage: 25 MG, 1X/DAY
     Route: 048
     Dates: start: 20160930, end: 20161130
  8. PARIET [Concomitant]
     Active Substance: RABEPRAZOLE SODIUM
     Indication: EPIGASTRIC DISCOMFORT
     Dosage: 10 MG, 1X/DAY
     Route: 048
     Dates: start: 20100805

REACTIONS (2)
  - Visual field defect [Not Recovered/Not Resolved]
  - Visual acuity reduced [Not Recovered/Not Resolved]

NARRATIVE: CASE EVENT DATE: 201610
